FAERS Safety Report 5112899-4 (Version None)
Quarter: 2006Q3

REPORT INFORMATION
  Report Type: 
  Country: None (occurrence: None)
  Receive Date: 20060922
  Receipt Date: 20060913
  Transmission Date: 20061208
  Serious: Yes (Other)
  Sender: FDA-Public Use
  Company Number: GB-JNJFOC-20060600377

PATIENT
  Sex: Female

DRUGS (3)
  1. TOPAMAX [Suspect]
     Dosage: 150 MG IN THE MORNING AND 200 MG AT NIGHT
     Route: 048
  2. TOPAMAX [Suspect]
     Route: 048
  3. TOPAMAX [Suspect]
     Indication: EPILEPSY
     Dosage: 150-200MG
     Route: 048

REACTIONS (2)
  - FEELING ABNORMAL [None]
  - GRAND MAL CONVULSION [None]
